FAERS Safety Report 7765488-7 (Version None)
Quarter: 2011Q3

REPORT INFORMATION
  Report Type: 
  Country: None (occurrence: None)
  Receive Date: 20110921
  Receipt Date: 20110912
  Transmission Date: 20111222
  Serious: Yes (Other)
  Sender: FDA-Public Use
  Company Number: US-TYCO HEALTHCARE/MALLINCKRODT-T201101794

PATIENT
  Sex: Female

DRUGS (6)
  1. CLARITIN                           /00917501/ [Concomitant]
     Indication: PRURITUS
  2. ASPIRIN [Concomitant]
     Dosage: 81 MG, QD
  3. EXALGO [Suspect]
     Dosage: 8 MG, QOD
     Route: 048
     Dates: end: 20110911
  4. EXALGO [Suspect]
     Indication: PAIN
     Dosage: 8 MG, QD
     Route: 048
     Dates: start: 20110826
  5. BENADRYL [Concomitant]
     Indication: PRURITUS
     Dosage: 1 TAB Q4 HRS PRN
  6. VENTOLIN HFA [Concomitant]
     Indication: OESOPHAGEAL SPASM
     Dosage: UNK, BID

REACTIONS (12)
  - PAIN [None]
  - PAROSMIA [None]
  - CONFUSIONAL STATE [None]
  - PRURITUS [None]
  - FORMICATION [None]
  - DYSGEUSIA [None]
  - CONSTIPATION [None]
  - SLUGGISHNESS [None]
  - FATIGUE [None]
  - AMNESIA [None]
  - INAPPROPRIATE SCHEDULE OF DRUG ADMINISTRATION [None]
  - NAUSEA [None]
